FAERS Safety Report 6716558-3 (Version None)
Quarter: 2010Q2

REPORT INFORMATION
  Report Type: 
  Country: None (occurrence: None)
  Receive Date: 20100507
  Receipt Date: 20100427
  Transmission Date: 20101027
  Serious: Yes (Hospitalization)
  Sender: FDA-Public Use
  Company Number: CH-ELI_LILLY_AND_COMPANY-CH201004007508

PATIENT
  Age: 29 Year
  Sex: Male

DRUGS (27)
  1. ZYPREXA [Suspect]
     Dosage: 10 MG, DAILY (1/D)
     Route: 048
     Dates: start: 20091005, end: 20091005
  2. ZYPREXA [Suspect]
     Dosage: 20 MG, DAILY (1/D)
     Route: 048
     Dates: start: 20091006, end: 20091006
  3. ZYPREXA [Suspect]
     Dosage: 25 MG, DAILY (1/D)
     Route: 048
     Dates: start: 20091007, end: 20091008
  4. ZYPREXA [Suspect]
     Dosage: 30 MG, DAILY (1/D)
     Route: 048
     Dates: start: 20091009, end: 20091013
  5. ZYPREXA [Suspect]
     Dosage: 25 MG, DAILY (1/D)
     Route: 048
     Dates: start: 20091014, end: 20091028
  6. ZYPREXA [Suspect]
     Dosage: 20 MG, DAILY (1/D)
     Route: 048
     Dates: start: 20091029, end: 20091031
  7. ZYPREXA [Suspect]
     Dosage: 15 MG, DAILY (1/D)
     Route: 048
     Dates: start: 20091101, end: 20091104
  8. ZYPREXA [Suspect]
     Dosage: 10 MG, DAILY (1/D)
     Route: 048
     Dates: start: 20091105, end: 20091115
  9. ZYPREXA [Suspect]
     Dosage: 5 MG, DAILY (1/D)
     Route: 048
     Dates: start: 20091116, end: 20091117
  10. LEPONEX [Concomitant]
     Dosage: 12.5 MG, DAILY (1/D)
     Route: 048
     Dates: start: 20091022, end: 20091025
  11. LEPONEX [Concomitant]
     Dosage: 25 MG, DAILY (1/D)
     Route: 048
     Dates: start: 20091026, end: 20091028
  12. LEPONEX [Concomitant]
     Dosage: 37.5 MG, DAILY (1/D)
     Route: 048
     Dates: start: 20091029, end: 20091031
  13. LEPONEX [Concomitant]
     Dosage: 50 MG, DAILY (1/D)
     Route: 048
     Dates: start: 20091101, end: 20091102
  14. LEPONEX [Concomitant]
     Dosage: 75 MG, DAILY (1/D)
     Route: 048
     Dates: start: 20091103, end: 20091104
  15. LEPONEX [Concomitant]
     Dosage: 100 MG, DAILY (1/D)
     Route: 048
     Dates: start: 20091105, end: 20091106
  16. LEPONEX [Concomitant]
     Dosage: 125 MG, DAILY (1/D)
     Route: 048
     Dates: start: 20091107, end: 20091108
  17. LEPONEX [Concomitant]
     Dosage: 150 MG, DAILY (1/D)
     Route: 048
     Dates: start: 20091109, end: 20091110
  18. LEPONEX [Concomitant]
     Dosage: 200 MG, DAILY (1/D)
     Route: 048
     Dates: start: 20091111, end: 20091112
  19. LEPONEX [Concomitant]
     Dosage: 225 MG, DAILY (1/D)
     Route: 048
     Dates: start: 20091113, end: 20091114
  20. LEPONEX [Concomitant]
     Dosage: 250 MG, DAILY (1/D)
     Route: 048
     Dates: start: 20091115, end: 20091116
  21. LEPONEX [Concomitant]
     Dosage: 275 MG, DAILY (1/D)
     Route: 048
     Dates: start: 20091117, end: 20091118
  22. DEPAKENE [Concomitant]
     Dosage: 300 MG, DAILY (1/D)
     Route: 048
     Dates: start: 20090922, end: 20090923
  23. DEPAKENE [Concomitant]
     Dosage: 600 MG, DAILY (1/D)
     Route: 048
     Dates: start: 20090924, end: 20091008
  24. DEPAKENE [Concomitant]
     Dosage: 750 MG, DAILY (1/D)
     Route: 048
     Dates: start: 20091009, end: 20091013
  25. DEPAKENE [Concomitant]
     Dosage: 900 MG, DAILY (1/D)
     Route: 048
     Dates: start: 20091014, end: 20091118
  26. INDERAL [Concomitant]
     Dosage: 40 MG, DAILY (1/D)
     Route: 048
     Dates: start: 20090922
  27. MOTILIUM [Concomitant]
     Dosage: 10 MG, DAILY (1/D)
     Route: 048
     Dates: start: 20090930, end: 20091006

REACTIONS (6)
  - DEPRESSION [None]
  - HEPATITIS [None]
  - LIVER FUNCTION TEST ABNORMAL [None]
  - OVERDOSE [None]
  - PANCREATITIS [None]
  - WEIGHT INCREASED [None]
